FAERS Safety Report 11339040 (Version 1)
Quarter: 2015Q3

REPORT INFORMATION
  Report Type: Spontaneous
  Country: US (occurrence: US)
  Receive Date: 20150803
  Receipt Date: 20150803
  Transmission Date: 20151125
  Serious: No
  Sender: FDA-Public Use
  Company Number: US-ELI_LILLY_AND_COMPANY-US200904000951

PATIENT
  Age: 6 Year
  Sex: Male

DRUGS (2)
  1. STRATTERA [Suspect]
     Active Substance: ATOMOXETINE HYDROCHLORIDE
     Indication: ATTENTION DEFICIT/HYPERACTIVITY DISORDER
     Dosage: 10 MG, DAILY (1/D)
     Route: 065
     Dates: start: 20090301
  2. STRATTERA [Suspect]
     Active Substance: ATOMOXETINE HYDROCHLORIDE
     Dosage: 25 MG, UNK
     Route: 065
     Dates: end: 20090325

REACTIONS (3)
  - Aggression [Unknown]
  - Irritability [Unknown]
  - Tearfulness [Unknown]

NARRATIVE: CASE EVENT DATE: 20090310
